FAERS Safety Report 8307031-X (Version None)
Quarter: 2012Q2

REPORT INFORMATION
  Report Type: 
  Country: None (occurrence: None)
  Receive Date: 20120424
  Receipt Date: 20120418
  Transmission Date: 20120825
  Serious: Yes (Other)
  Sender: FDA-Public Use
  Company Number: PHHY2012CA031118

PATIENT
  Sex: Male

DRUGS (2)
  1. CLOZARIL [Suspect]
     Indication: PSYCHOTIC DISORDER
     Dosage: 350 MG, QD
     Route: 048
     Dates: start: 20120403
  2. VALPROATE SODIUM [Concomitant]
     Dosage: 750 MG, QHS

REACTIONS (1)
  - ABSCESS ORAL [None]
